FAERS Safety Report 10733161 (Version 1)
Quarter: 2015Q1

REPORT INFORMATION
  Report Type: Spontaneous
  Country: HR (occurrence: HR)
  Receive Date: 20150123
  Receipt Date: 20150123
  Transmission Date: 20150721
  Serious: Yes (Other)
  Sender: FDA-Public Use
  Company Number: PHHY2015HR006850

PATIENT
  Age: 38 Year
  Sex: Male
  Weight: 124 kg

DRUGS (3)
  1. KETONAL [Concomitant]
     Active Substance: KETOPROFEN
     Indication: PAIN
     Dosage: 100 MG, QD
     Route: 048
     Dates: start: 2010
  2. SANVAL [Suspect]
     Active Substance: ZOLPIDEM TARTRATE
     Indication: INSOMNIA
     Dosage: 10 MG, 2 TO 3 TIMES A WEEK AS NECESSARY
     Route: 048
     Dates: start: 201005, end: 20141107
  3. BELODIN [Concomitant]
     Indication: HYPERSENSITIVITY
     Dosage: 10 MG, QD
     Route: 048
     Dates: start: 2010

REACTIONS (4)
  - Somnambulism [Recovered/Resolved]
  - Altered state of consciousness [Recovered/Resolved]
  - Binge eating [Recovered/Resolved]
  - Sleep talking [Recovered/Resolved]

NARRATIVE: CASE EVENT DATE: 201405
